FAERS Safety Report 20690446 (Version 1)
Quarter: 2022Q2

REPORT INFORMATION
  Report Type: Spontaneous
  Country: US (occurrence: None)
  Receive Date: 20220406
  Receipt Date: 20220406
  Transmission Date: 20220721
  Serious: Yes (Hospitalization)
  Sender: FDA-Public Use
  Company Number: None

PATIENT
  Age: 77 Year
  Sex: Female
  Weight: 95.2 kg

DRUGS (2)
  1. FEMARA [Suspect]
     Active Substance: LETROZOLE
     Dates: end: 20220403
  2. PALBOCICLIB [Suspect]
     Active Substance: PALBOCICLIB
     Dates: end: 20220403

REACTIONS (5)
  - Lung opacity [None]
  - Malaise [None]
  - Chills [None]
  - Dyspnoea [None]
  - Upper respiratory tract infection [None]

NARRATIVE: CASE EVENT DATE: 20220322
